FAERS Safety Report 8125617 (Version 3)
Quarter: 2013Q3

REPORT INFORMATION
  Report Type: Spontaneous
  Country: US (occurrence: US)
  Receive Date: 20110908
  Receipt Date: 20130719
  Transmission Date: 20140515
  Serious: Yes (Hospitalization, Other)
  Sender: FDA-Public Use
  Company Number: US-JNJFOC-20110609755

PATIENT
  Age: 56 Year
  Sex: Female

DRUGS (4)
  1. LEVAQUIN [Suspect]
     Indication: SINUSITIS
     Route: 048
  2. CIPROFLOXACIN [Suspect]
     Indication: SINUSITIS
     Route: 048
  3. AVELOX [Suspect]
     Indication: SINUSITIS
     Route: 048
  4. METHYLPREDNISOLONE [Suspect]
     Indication: SINUSITIS
     Route: 065

REACTIONS (3)
  - Rotator cuff syndrome [Unknown]
  - Rotator cuff syndrome [Unknown]
  - Rotator cuff syndrome [Unknown]
